FAERS Safety Report 22223052 (Version 1)
Quarter: 2023Q2

REPORT INFORMATION
  Report Type: Spontaneous
  Country: DE (occurrence: DE)
  Receive Date: 20230418
  Receipt Date: 20230418
  Transmission Date: 20230721
  Serious: Yes (Other)
  Sender: FDA-Public Use
  Company Number: DE-TEVA-2023-DE-2873648

PATIENT
  Age: 89 Year
  Sex: Male

DRUGS (7)
  1. CEFTRIAXONE [Suspect]
     Active Substance: CEFTRIAXONE
     Indication: Product used for unknown indication
     Dosage: (ONE INFUSION THREE TIMES DAILY), TID
     Route: 065
     Dates: start: 202303
  2. AMOXICILLIN [Suspect]
     Active Substance: AMOXICILLIN
     Indication: Product used for unknown indication
     Dosage: UNK, (DOSAGE: 1-1-1)  TID
     Route: 048
     Dates: start: 202303, end: 202303
  3. MEROPENEM [Suspect]
     Active Substance: MEROPENEM
     Indication: Product used for unknown indication
     Dosage: UNK , TID (ONE INFUSION THREE TIMES DAILY)
     Route: 065
     Dates: start: 202303
  4. URAPIDIL [Suspect]
     Active Substance: URAPIDIL
     Indication: Hypertension
     Dosage: UNK, QD (DRUG DOSAGE: 0-1-0)
     Route: 048
  5. CANDESARTAN CILEXETIL [Suspect]
     Active Substance: CANDESARTAN CILEXETIL
     Indication: Product used for unknown indication
     Dosage: 16 MG, QD
     Route: 065
     Dates: start: 202303
  6. ALLOPURINOL [Concomitant]
     Active Substance: ALLOPURINOL
     Indication: Product used for unknown indication
     Dosage: UNK, QD (1-0-0; TAKEN FOR YEARS)
     Route: 065
  7. TORSEMIDE [Concomitant]
     Active Substance: TORSEMIDE
     Indication: Hypertension
     Dosage: 10 MG, QD (SINCE YEARS)
     Route: 065

REACTIONS (4)
  - Walking disability [Unknown]
  - Asthenia [Unknown]
  - Muscular weakness [Unknown]
  - Urinary incontinence [Unknown]

NARRATIVE: CASE EVENT DATE: 20230301
